FAERS Safety Report 15220955 (Version 8)
Quarter: 2019Q3

REPORT INFORMATION
  Report Type: Spontaneous
  Country: IT (occurrence: IT)
  Receive Date: 20180731
  Receipt Date: 20190905
  Transmission Date: 20191004
  Serious: Yes (Hospitalization, Other)
  Sender: FDA-Public Use
  Company Number: IT-PFIZER INC-2018306875

PATIENT
  Age: 45 Year
  Sex: Male

DRUGS (4)
  1. TORVAST [Suspect]
     Active Substance: ATORVASTATIN
     Dosage: 30 MG, UNK (3 DF, TOTAL)
     Route: 048
     Dates: start: 20180617, end: 20180617
  2. CARDIOASPIRIN 100 MG COMPRESSE GASTRORESISTENTI [Suspect]
     Active Substance: ASPIRIN
     Dosage: 400 MG, UNK (4 DF, TOTAL)
     Route: 048
     Dates: start: 20180617, end: 20180617
  3. TRIATEC [RAMIPRIL] [Suspect]
     Active Substance: RAMIPRIL
     Dosage: 3 DF, UNK (TOTAL)
     Route: 048
     Dates: start: 20180617, end: 20180617
  4. OMEPRAZEN [Suspect]
     Active Substance: OMEPRAZOLE
     Dosage: 20 MG, UNK (1 DF, TOTAL)
     Route: 048
     Dates: start: 20180617, end: 20180617

REACTIONS (4)
  - Hypotension [Recovered/Resolved]
  - Abdominal pain [Recovered/Resolved]
  - Suicide attempt [Recovered/Resolved]
  - Drug abuse [Recovered/Resolved]

NARRATIVE: CASE EVENT DATE: 20180617
